FAERS Safety Report 5320880-5 (Version None)
Quarter: 2007Q2

REPORT INFORMATION
  Report Type: 
  Country: None (occurrence: None)
  Receive Date: 20070504
  Receipt Date: 20070424
  Transmission Date: 20071010
  Serious: Yes (Hospitalization)
  Sender: FDA-Public Use
  Company Number: DSM-2007-00117

PATIENT
  Age: 58 Year
  Sex: Male

DRUGS (2)
  1. OLPRESS (OLMESARTAN MEDOXOMIL) (20 MILLIGRAM, TABLET) (OLMESARTAN MEDO [Suspect]
     Indication: ESSENTIAL HYPERTENSION
     Dosage: 20 MG (20 MG, 1 IN 1 D), ORAL
     Route: 048
     Dates: start: 20070325, end: 20070331
  2. VERAPAMIL [Suspect]
     Indication: ESSENTIAL HYPERTENSION
     Dosage: 240 MG, ORAL
     Route: 048
     Dates: start: 20070325, end: 20070331

REACTIONS (2)
  - BLOOD PRESSURE DECREASED [None]
  - SYNCOPE [None]
